FAERS Safety Report 6739187-4 (Version None)
Quarter: 2010Q2

REPORT INFORMATION
  Report Type: 
  Country: None (occurrence: None)
  Receive Date: 20100525
  Receipt Date: 20100302
  Transmission Date: 20101027
  Serious: No
  Sender: FDA-Public Use
  Company Number: A0847558A

PATIENT
  Age: 64 Year
  Sex: Female

DRUGS (5)
  1. VERAMYST [Suspect]
     Dosage: 1SPR PER DAY
     Route: 045
     Dates: start: 20081219, end: 20100220
  2. PREMARIN [Concomitant]
  3. ZETIA [Concomitant]
  4. PIROXICAM [Concomitant]
  5. PRILOSEC [Concomitant]

REACTIONS (5)
  - BLISTER [None]
  - EPISTAXIS [None]
  - NASAL ULCER [None]
  - PAIN [None]
  - SCAB [None]
